FAERS Safety Report 14738085 (Version 7)
Quarter: 2018Q4

REPORT INFORMATION
  Report Type: Report from Study
  Country: GR (occurrence: GR)
  Receive Date: 20180409
  Receipt Date: 20181023
  Transmission Date: 20190204
  Serious: Yes (Death, Life-Threatening, Hospitalization)
  Sender: FDA-Public Use
  Company Number: GR-PFIZER INC-2018138793

PATIENT
  Age: 48 Year
  Sex: Male
  Weight: 59 kg

DRUGS (11)
  1. CYTOXAN [Suspect]
     Active Substance: CYCLOPHOSPHAMIDE
     Indication: PLASMA CELL MYELOMA RECURRENT
     Dosage: 400 MG/M2, DAYS 1, 2, 3 AND 4 OF EACH CYCLE
     Route: 042
     Dates: start: 20160628, end: 20170120
  2. DOXORUBICIN HCL [Suspect]
     Active Substance: DOXORUBICIN HYDROCHLORIDE
     Indication: PLASMA CELL MYELOMA RECURRENT
     Dosage: 10 MG/M2, CYCLIC, ON DAYS 1, 2, 3 AND 4 OF EACH CYCLE
     Route: 042
     Dates: start: 20160628, end: 20170120
  3. DEXAMETHASONE. [Suspect]
     Active Substance: DEXAMETHASONE
     Indication: PLASMA CELL MYELOMA RECURRENT
     Dosage: 20 MG, CYCLIC, DAYS 1, 2, 3 AND 4 OF EACH CYCLE
     Route: 048
     Dates: start: 20170404, end: 20170502
  4. VELCADE [Suspect]
     Active Substance: BORTEZOMIB
     Indication: PLASMA CELL MYELOMA RECURRENT
     Dosage: 1.3 MG/M2, CYCLIC, DAYS 1, 4 AND 8 OF EACH CYCLE
     Route: 058
     Dates: start: 20160628, end: 20161201
  5. VELCADE [Suspect]
     Active Substance: BORTEZOMIB
     Dosage: 1.3 MG/M2, CYCLIC, DAYS 1, 4 AND 8 OF EACH CYCLE
     Route: 058
     Dates: start: 20170116, end: 20170120
  6. REVLIMID [Suspect]
     Active Substance: LENALIDOMIDE
     Indication: PLASMA CELL MYELOMA RECURRENT
     Dosage: 10 MG, UNK
     Route: 048
  7. DEXAMETHASONE. [Suspect]
     Active Substance: DEXAMETHASONE
     Dosage: 40 MG, CYCLIC; DOSAGE FORM: UNSPECIFIED
     Route: 048
     Dates: start: 20160628, end: 20170120
  8. VELCADE [Suspect]
     Active Substance: BORTEZOMIB
     Dosage: 1.3 MG/M2, CYCLIC DOSAGE FORM: LYOPHILIZED POWDER, DAYS 1, 4 AND 8 OF EACH CYCLE
     Route: 058
     Dates: start: 20170404, end: 20170502
  9. IMNOVID [Suspect]
     Active Substance: POMALIDOMIDE
     Indication: PLASMA CELL MYELOMA RECURRENT
     Dosage: 4 MG, CYCLIC, DAYS 1, 2, 3 AND 4 OF EACH CYCLE
     Route: 048
     Dates: start: 20170404, end: 20170414
  10. ETOPOSIDE. [Suspect]
     Active Substance: ETOPOSIDE
     Indication: PLASMA CELL MYELOMA RECURRENT
     Dosage: 40 MG/M2, CYCLIC, DAYS 1, 2, 3 AND 4 OF EACH CYCLE
     Route: 065
     Dates: start: 20160628, end: 20170120
  11. PLATINOL [Suspect]
     Active Substance: CISPLATIN
     Indication: PLASMA CELL MYELOMA RECURRENT
     Dosage: 10 MG/M2, CYCLIC, DAYS 1, 2, 3 AND 4 OF EACH CYCLE
     Route: 042
     Dates: start: 20160628, end: 20170120

REACTIONS (6)
  - Pyrexia [Fatal]
  - Pyrexia [Fatal]
  - Respiratory tract infection [Fatal]
  - Neoplasm progression [Fatal]
  - Febrile neutropenia [Fatal]
  - Multiple organ dysfunction syndrome [Fatal]

NARRATIVE: CASE EVENT DATE: 20170104
